FAERS Safety Report 14240628 (Version 2)
Quarter: 2018Q1

REPORT INFORMATION
  Report Type: Spontaneous
  Country: JP (occurrence: JP)
  Receive Date: 20171130
  Receipt Date: 20180110
  Transmission Date: 20180508
  Serious: No
  Sender: FDA-Public Use
  Company Number: JP-PFIZER INC-2017509411

PATIENT
  Age: 44 Year
  Sex: Female
  Weight: 49 kg

DRUGS (1)
  1. NASANYL 0.2% [Suspect]
     Active Substance: NAFARELIN ACETATE
     Indication: UTERINE POLYP
     Dosage: UNK
     Route: 045
     Dates: start: 20171016, end: 20171121

REACTIONS (2)
  - Metrorrhagia [Recovered/Resolved]
  - Drug ineffective for unapproved indication [Recovered/Resolved]

NARRATIVE: CASE EVENT DATE: 20171016
